FAERS Safety Report 9975581 (Version 1)
Quarter: 2014Q1

REPORT INFORMATION
  Report Type: Report from Study
  Country: US (occurrence: US)
  Receive Date: 20140306
  Receipt Date: 20140306
  Transmission Date: 20141002
  Serious: No
  Sender: FDA-Public Use
  Company Number: US-ABBVIE-13P-163-1155919-00

PATIENT
  Age: 55 Year
  Sex: Female

DRUGS (10)
  1. HUMIRA [Suspect]
     Indication: CROHN^S DISEASE
     Dates: start: 201307, end: 20130926
  2. 6-MP [Suspect]
     Indication: PAIN
     Dates: start: 20130926
  3. GABAPENTIN [Suspect]
     Indication: PAIN
     Dates: start: 20130926
  4. TRAMADOL [Suspect]
     Indication: PAIN
     Dates: start: 20130928
  5. TRAMADOL [Suspect]
     Dates: start: 20130930
  6. QUETIAPINE FUMARATE [Concomitant]
     Indication: INSOMNIA
     Dosage: 50MG ONE TAB IN AM AND TWO TABS AT BEDTIME
  7. QUETIAPINE FUMARATE [Concomitant]
     Indication: ANXIETY
  8. KLONOPIN [Concomitant]
     Indication: INSOMNIA
     Dosage: 200 MG 1/2 TAB IN AM AND ONE TAB AT BEDTIME
  9. KLONOPIN [Concomitant]
     Indication: ANXIETY
  10. ZOLPIDEM [Concomitant]
     Indication: INSOMNIA
     Dosage: AT BEDTIME

REACTIONS (7)
  - Drug ineffective [Unknown]
  - Drug ineffective [Unknown]
  - Arthralgia [Not Recovered/Not Resolved]
  - Arthralgia [Not Recovered/Not Resolved]
  - Abdominal pain [Not Recovered/Not Resolved]
  - Back pain [Not Recovered/Not Resolved]
  - Drug effect incomplete [Not Recovered/Not Resolved]
